FAERS Safety Report 5499601-1 (Version None)
Quarter: 2007Q4

REPORT INFORMATION
  Report Type: 
  Country: None (occurrence: None)
  Receive Date: 20071026
  Receipt Date: 20071004
  Transmission Date: 20080405
  Serious: Yes (Hospitalization)
  Sender: FDA-Public Use
  Company Number: US-ASTRAZENECA-2007UW17014

PATIENT
  Age: 18007 Day
  Sex: Male
  Weight: 105.5 kg

DRUGS (40)
  1. SEROQUEL [Suspect]
     Indication: SLEEP DISORDER
     Route: 048
     Dates: start: 20001025, end: 20010328
  2. SEROQUEL [Suspect]
     Indication: DEPRESSION
     Route: 048
     Dates: start: 20001025, end: 20010328
  3. SEROQUEL [Suspect]
     Route: 048
     Dates: start: 20010328, end: 20021215
  4. SEROQUEL [Suspect]
     Route: 048
     Dates: start: 20010328, end: 20021215
  5. SEROQUEL [Suspect]
     Route: 048
     Dates: start: 20021215, end: 20050120
  6. SEROQUEL [Suspect]
     Route: 048
     Dates: start: 20021215, end: 20050120
  7. SEROQUEL [Suspect]
     Route: 048
     Dates: start: 20050120, end: 20050310
  8. SEROQUEL [Suspect]
     Route: 048
     Dates: start: 20050120, end: 20050310
  9. GEODON [Concomitant]
     Dates: start: 20010328
  10. ZIAC [Concomitant]
     Dates: start: 20010315
  11. ALTACE [Concomitant]
     Dates: start: 20010315
  12. LOXITANE [Concomitant]
     Dates: start: 20010925
  13. REMERON [Concomitant]
     Dates: start: 19990204, end: 20011114
  14. REMERON [Concomitant]
  15. TOPAMAX [Concomitant]
  16. TOPAMAX [Concomitant]
     Dates: start: 20020109, end: 20020830
  17. ABILIFY [Concomitant]
     Dosage: 15-30 MG
     Dates: start: 20021211
  18. WELLBUTRIN SR [Concomitant]
     Dates: start: 20010328, end: 20021215
  19. WELLBUTRIN SR [Concomitant]
     Dates: start: 20021215
  20. XANAX [Concomitant]
     Dates: start: 19971119
  21. KLONOPIN [Concomitant]
     Indication: ANXIETY
     Dates: start: 20021211
  22. DESYREL [Concomitant]
     Dates: start: 20030428, end: 20050310
  23. AVAPRO [Concomitant]
     Indication: SLEEP APNOEA SYNDROME
     Dates: start: 20030718
  24. AVAPRO [Concomitant]
     Indication: DEPRESSION
     Dates: start: 20030718
  25. NOVOLOG [Concomitant]
     Indication: DIABETES MELLITUS
     Dates: start: 20030718
  26. TRILEPTAL [Concomitant]
     Dates: start: 20050120
  27. BENADRYL [Concomitant]
  28. HALDOL [Concomitant]
     Dates: end: 19971119
  29. RISPERDAL [Concomitant]
     Dates: start: 19971224, end: 19980312
  30. RISPERDAL [Concomitant]
     Dates: start: 19980414, end: 19980915
  31. RISPERDAL [Concomitant]
     Dates: start: 19980915, end: 19990629
  32. STELAZINE [Concomitant]
     Dates: start: 19971109
  33. THORAZINE [Concomitant]
     Dates: start: 19991223, end: 20000224
  34. THORAZINE [Concomitant]
     Dates: start: 20000224, end: 20001025
  35. TRILAFON [Concomitant]
     Dates: start: 19971119
  36. ZYPREXA [Concomitant]
     Dates: start: 19980915, end: 19981006
  37. ZYPREXA [Concomitant]
     Dates: end: 20060331
  38. TRICOR [Concomitant]
     Indication: HYPERLIPIDAEMIA
  39. LANTUS [Concomitant]
     Indication: DIABETES MELLITUS
  40. PRILOSEC OTC [Concomitant]
     Indication: PROPHYLAXIS AGAINST GASTROINTESTINAL ULCER

REACTIONS (6)
  - NEPHROLITHIASIS [None]
  - OBSTRUCTION GASTRIC [None]
  - PANCREATITIS [None]
  - TYPE 2 DIABETES MELLITUS [None]
  - URETHRAL STENOSIS [None]
  - WEIGHT INCREASED [None]
